FAERS Safety Report 7034632-1 (Version None)
Quarter: 2010Q4

REPORT INFORMATION
  Report Type: 
  Country: None (occurrence: None)
  Receive Date: 20101008
  Receipt Date: 20101006
  Transmission Date: 20110411
  Serious: Yes (Life-Threatening, Hospitalization)
  Sender: FDA-Public Use
  Company Number: BE-ELI_LILLY_AND_COMPANY-BE200907007187

PATIENT
  Age: 51 Year
  Sex: Male
  Weight: 60 kg

DRUGS (20)
  1. PEMETREXED [Suspect]
     Indication: NON-SMALL CELL LUNG CANCER
     Dosage: 500 MG/M2, ON DAY 1 EVERY 21 DAYS
     Route: 042
     Dates: start: 20090324, end: 20090527
  2. PEMETREXED [Suspect]
     Dosage: UNK, ON D1 EVERY 21 DAYS
     Route: 042
     Dates: start: 20090615
  3. CISPLATIN [Suspect]
     Indication: NON-SMALL CELL LUNG CANCER
     Dosage: 75 MG/M2, ON DAY 1 EVERY 21 DAYS
     Route: 042
     Dates: start: 20090324, end: 20090527
  4. BEST SUPPORTIVE CARE [Suspect]
     Indication: NON-SMALL CELL LUNG CANCER
     Dosage: ON DAY 1 EVERY 21 DAYS
     Route: 042
     Dates: start: 20090615
  5. FOLIC ACID [Concomitant]
     Indication: PROPHYLAXIS
     Dates: start: 20090310
  6. VITAMIN B-12 [Concomitant]
     Indication: PROPHYLAXIS
     Dates: start: 20090310, end: 20090727
  7. DEXAMETHASONE [Concomitant]
     Indication: PROPHYLAXIS
     Dates: start: 20090727, end: 20090729
  8. ZOMETA [Concomitant]
     Dosage: UNK, MONTHLY (1/M)
     Dates: start: 20090225
  9. GARDENAL [Concomitant]
     Dates: start: 19940101
  10. TENORMIN [Concomitant]
     Dates: start: 20030101
  11. MS DIRECT [Concomitant]
     Dates: start: 20090307
  12. DURAGESIC-100 [Concomitant]
     Dates: start: 20090226
  13. PARACETAMOL [Concomitant]
     Dosage: UNK, AS NEEDED
     Dates: start: 20090225
  14. PLAVIX [Concomitant]
     Dates: start: 20090326
  15. AUGMENTIN '125' [Concomitant]
     Dates: start: 20090712, end: 20090728
  16. SPORANOX [Concomitant]
     Dates: start: 20090714, end: 20090724
  17. TERRAMYCINE [Concomitant]
     Dates: start: 20090724, end: 20090728
  18. GENTEAL [Concomitant]
     Dates: start: 20090728
  19. LORMETAZEPAM [Concomitant]
     Dates: start: 20090718, end: 20090728
  20. DAKTARIN                                /BEL/ [Concomitant]
     Dates: start: 20090722

REACTIONS (3)
  - ANAEMIA [None]
  - GASTRIC HAEMORRHAGE [None]
  - GASTRIC ULCER [None]
